FAERS Safety Report 15751993 (Version 2)
Quarter: 2018Q4

REPORT INFORMATION
  Report Type: Spontaneous
  Country: IN (occurrence: IN)
  Receive Date: 20181221
  Receipt Date: 20181226
  Transmission Date: 20190205
  Serious: Yes (Other)
  Sender: FDA-Public Use
  Company Number: IN-SHIRE-IN201848217

PATIENT

DRUGS (6)
  1. FEIBA NF [Suspect]
     Active Substance: ANTI-INHIBITOR COAGULANT COMPLEX
     Indication: HAEMOPHILIA
     Dosage: UNK
     Route: 065
     Dates: start: 201606
  2. FEIBA NF [Suspect]
     Active Substance: ANTI-INHIBITOR COAGULANT COMPLEX
     Indication: ANTI FACTOR VIII ANTIBODY POSITIVE
  3. FACTOR VIII (ANTIHAEMOPHILIC FACTOR) W/PLASMA [Concomitant]
     Indication: IMMUNE TOLERANCE INDUCTION
  4. FACTOR VIII (ANTIHAEMOPHILIC FACTOR) W/PLASMA [Concomitant]
     Dosage: UNK
  5. GEMCAL [Concomitant]
     Active Substance: CALCIUM
     Indication: PRODUCT USED FOR UNKNOWN INDICATION
  6. VITCOFOL [Concomitant]
     Indication: PRODUCT USED FOR UNKNOWN INDICATION

REACTIONS (1)
  - Hepatitis C [Unknown]
